FAERS Safety Report 16704190 (Version 8)
Quarter: 2023Q1

REPORT INFORMATION
  Report Type: Report from Study
  Country: US (occurrence: US)
  Receive Date: 20190814
  Receipt Date: 20230215
  Transmission Date: 20230417
  Serious: Yes (Life-Threatening, Hospitalization)
  Sender: FDA-Public Use
  Company Number: US-GILEAD-2018-0351520

PATIENT
  Age: 74 Year
  Sex: Female
  Weight: 70.8 kg

DRUGS (41)
  1. AXICABTAGENE CILOLEUCEL [Suspect]
     Active Substance: AXICABTAGENE CILOLEUCEL
     Indication: High-grade B-cell lymphoma
     Dosage: 68 ONCE
     Route: 042
     Dates: start: 20180718, end: 20180718
  2. CYCLOPHOSPHAMIDE [Suspect]
     Active Substance: CYCLOPHOSPHAMIDE
     Indication: Bone marrow conditioning regimen
     Dosage: 940
     Route: 042
     Dates: start: 20180713, end: 20180713
  3. CYCLOPHOSPHAMIDE [Suspect]
     Active Substance: CYCLOPHOSPHAMIDE
     Dosage: 940
     Route: 042
     Dates: start: 20180714, end: 20180714
  4. CYCLOPHOSPHAMIDE [Suspect]
     Active Substance: CYCLOPHOSPHAMIDE
     Dosage: 940
     Route: 042
     Dates: start: 20180715, end: 20180715
  5. FLUDARABINE [Suspect]
     Active Substance: FLUDARABINE PHOSPHATE
     Indication: Bone marrow conditioning regimen
     Dosage: 38
     Route: 042
     Dates: start: 20180713, end: 20180713
  6. FLUDARABINE [Suspect]
     Active Substance: FLUDARABINE PHOSPHATE
     Dosage: 38
     Route: 042
     Dates: start: 20180714, end: 20180714
  7. FLUDARABINE [Suspect]
     Active Substance: FLUDARABINE PHOSPHATE
     Dosage: 38
     Route: 042
     Dates: start: 20180715, end: 20180715
  8. DECADRON [Concomitant]
     Active Substance: DEXAMETHASONE
  9. ZYLOPRIM [Concomitant]
     Active Substance: ALLOPURINOL
  10. PEPCID                             /00706001/ [Concomitant]
  11. PERIDEX                            /00133002/ [Concomitant]
  12. OMNIPAQUE [Concomitant]
     Active Substance: IOHEXOL
  13. IMODIUM [Concomitant]
     Active Substance: LOPERAMIDE HYDROCHLORIDE
  14. ZOFRAN                             /00955301/ [Concomitant]
  15. ROXICODONE [Concomitant]
     Active Substance: OXYCODONE HYDROCHLORIDE
  16. NYSTATIN [Concomitant]
     Active Substance: NYSTATIN
  17. CRYOPRECIPITATED ANTIHEMOPHILIC FACTOR (HUMAN) [Concomitant]
     Active Substance: CRYOPRECIPITATED ANTIHEMOPHILIC FACTOR (HUMAN)
  18. VITAMIN K [Concomitant]
     Active Substance: PHYTONADIONE
  19. AMIODARONE [Concomitant]
     Active Substance: AMIODARONE
  20. SYNTHROID [Concomitant]
     Active Substance: LEVOTHYROXINE SODIUM
     Dosage: 50,UG,DAILY
     Route: 048
     Dates: start: 20130101
  21. TENORMIN [Concomitant]
     Active Substance: ATENOLOL
     Dosage: 12.5,MG,TWICE DAILY
     Route: 048
     Dates: start: 20150301
  22. COENZYME Q10 [Concomitant]
     Active Substance: DIETARY SUPPLEMENT\UBIDECARENONE
     Dosage: 100,MG,DAILY
     Route: 048
     Dates: start: 20150301, end: 20180718
  23. COENZYME Q10 [Concomitant]
     Active Substance: DIETARY SUPPLEMENT\UBIDECARENONE
     Dosage: 100,MG,DAILY
     Route: 048
     Dates: start: 20180803
  24. ATORVASTATIN [Concomitant]
     Active Substance: ATORVASTATIN
     Dosage: 40,MG,DAILY
     Route: 048
     Dates: start: 20150301, end: 20180718
  25. PEPCID [Concomitant]
     Active Substance: FAMOTIDINE
     Dosage: 20,MG,DAILY
     Route: 048
     Dates: start: 20150301, end: 20180718
  26. COLACE [Concomitant]
     Active Substance: DOCUSATE SODIUM
     Dosage: 100,MG,DAILY
     Route: 048
     Dates: start: 20160101, end: 20180718
  27. COLACE [Concomitant]
     Active Substance: DOCUSATE SODIUM
     Dosage: 100,MG,DAILY
     Route: 048
     Dates: start: 20180803
  28. CYANOCOBALAMIN [Concomitant]
     Active Substance: CYANOCOBALAMIN
     Dosage: 1000,UG,DAILY
     Route: 048
     Dates: start: 20160101, end: 20180718
  29. CYANOCOBALAMIN [Concomitant]
     Active Substance: CYANOCOBALAMIN
     Dosage: 1000,UG,DAILY
     Route: 048
     Dates: start: 20180803
  30. ASPIRIN [Concomitant]
     Active Substance: ASPIRIN
     Dosage: 81,MG,DAILY
     Route: 048
     Dates: start: 20180301, end: 20180718
  31. KEPPRA [Concomitant]
     Active Substance: LEVETIRACETAM
     Indication: Prophylaxis
     Dosage: 500,MG,TWICE DAILY
     Route: 048
     Dates: start: 20180718, end: 20180729
  32. KEPPRA [Concomitant]
     Active Substance: LEVETIRACETAM
     Dosage: 500,MG,TWICE DAILY
     Route: 048
     Dates: start: 20180802, end: 20180817
  33. ACETAMINOPHEN [Concomitant]
     Active Substance: ACETAMINOPHEN
     Dosage: 650,OTHER,TWICE DAILY
     Route: 048
     Dates: start: 20180718, end: 20180718
  34. ALLOPURINOL [Concomitant]
     Active Substance: ALLOPURINOL
     Dosage: 300,MG,ONCE
     Route: 048
     Dates: start: 20180718, end: 20180730
  35. PERIDEX [CHLORHEXIDINE GLUCONATE] [Concomitant]
     Dosage: 15,ML,THREE TIMES DAILY
     Route: 050
     Dates: start: 20180718, end: 20180802
  36. BENADRYL [Concomitant]
     Active Substance: DIPHENHYDRAMINE HYDROCHLORIDE
     Dosage: 25,MG,ONCE
     Route: 048
     Dates: start: 20180718, end: 20180718
  37. BENADRYL [Concomitant]
     Active Substance: DIPHENHYDRAMINE HYDROCHLORIDE
     Dosage: 25,MG,ONCE
     Route: 042
     Dates: start: 20180727, end: 20180727
  38. SENOKOT [Concomitant]
     Active Substance: SENNOSIDES
     Dosage: 17.2,MG,AS NECESSARY
     Route: 048
     Dates: start: 20180718, end: 20180801
  39. SENOKOT [Concomitant]
     Active Substance: SENNOSIDES
     Dosage: 8.6,MG,TWICE DAILY
     Route: 048
     Dates: start: 20180802
  40. METOPROLOL TARTRATE [Concomitant]
     Active Substance: METOPROLOL TARTRATE
     Dosage: 25,MG,TWICE DAILY
     Route: 048
     Dates: start: 20180718, end: 20180722
  41. ZANTAC [Concomitant]
     Active Substance: RANITIDINE HYDROCHLORIDE
     Dosage: 150,MG,TWICE DAILY
     Route: 048
     Dates: start: 20180718, end: 20181003

REACTIONS (8)
  - Coagulopathy [Recovered/Resolved]
  - Cardiomyopathy [Recovered/Resolved]
  - Atrial fibrillation [Recovered/Resolved]
  - Acute respiratory failure [Recovered/Resolved]
  - Cytokine release syndrome [Recovered/Resolved]
  - Somnolence [Recovered/Resolved]
  - Tachypnoea [Recovered/Resolved]
  - Sinus tachycardia [Recovered/Resolved]

NARRATIVE: CASE EVENT DATE: 20180719
